FAERS Safety Report 24590948 (Version 1)
Quarter: 2024Q4

REPORT INFORMATION
  Report Type: Spontaneous
  Country: US (occurrence: US)
  Receive Date: 20241107
  Receipt Date: 20241107
  Transmission Date: 20250115
  Serious: No
  Sender: MERCK
  Company Number: US-009507513-2410USA005212

PATIENT
  Sex: Male

DRUGS (8)
  1. KEYTRUDA [Suspect]
     Active Substance: PEMBROLIZUMAB
     Indication: Non-small cell lung cancer
     Dosage: UNK
     Route: 042
     Dates: start: 20240815
  2. EFFIENT [Concomitant]
     Active Substance: PRASUGREL HYDROCHLORIDE
     Dosage: 10 MILLIGRAM
  3. REMERON [Concomitant]
     Active Substance: MIRTAZAPINE
     Dosage: 30 MILLIGRAM
  4. GUAIFENESIN [Concomitant]
     Active Substance: GUAIFENESIN
     Dosage: 400 MILLIGRAM, BID
     Route: 048
  5. OMEPRAZOLE [Concomitant]
     Active Substance: OMEPRAZOLE
  6. DEXAMETHASONE [Concomitant]
     Active Substance: DEXAMETHASONE
  7. SODIUM CHLORIDE [Concomitant]
     Active Substance: SODIUM CHLORIDE
     Dosage: UNK
  8. LASIX [Concomitant]
     Active Substance: FUROSEMIDE
     Dosage: UNK

REACTIONS (8)
  - Oedema peripheral [Not Recovered/Not Resolved]
  - Blood albumin decreased [Unknown]
  - Protein total decreased [Unknown]
  - Palliative care [Unknown]
  - Gait disturbance [Unknown]
  - Blood sodium decreased [Unknown]
  - Fatigue [Unknown]
  - Diarrhoea [Unknown]

NARRATIVE: CASE EVENT DATE: 20240101
